FAERS Safety Report 11163706 (Version 1)
Quarter: 2015Q2

REPORT INFORMATION
  Report Type: Spontaneous
  Country: US (occurrence: US)
  Receive Date: 20150604
  Receipt Date: 20150604
  Transmission Date: 20150821
  Serious: Yes (Other)
  Sender: FDA-Public Use
  Company Number: US-SA-2014SA178744

PATIENT
  Age: 54 Year
  Sex: Male

DRUGS (1)
  1. LANTUS [Suspect]
     Active Substance: INSULIN GLARGINE
     Indication: TYPE 1 DIABETES MELLITUS
     Dosage: DOSE: 20/10 U
     Route: 065

REACTIONS (5)
  - Blood glucose increased [Unknown]
  - Disorientation [Unknown]
  - General physical health deterioration [Unknown]
  - Blood glucose decreased [Unknown]
  - Drug administration error [Unknown]
